FAERS Safety Report 17926804 (Version 1)
Quarter: 2020Q2

REPORT INFORMATION
  Report Type: Other
  Country: US (occurrence: US)
  Receive Date: 20200623
  Receipt Date: 20200623
  Transmission Date: 20200714
  Serious: No
  Sender: FDA-Public Use
  Company Number: US-BIOVITRUM-2019US0411

PATIENT
  Sex: Female

DRUGS (6)
  1. PREDNISONE. [Concomitant]
     Active Substance: PREDNISONE
  2. KINERET [Suspect]
     Active Substance: ANAKINRA
     Dosage: 100MG/0.67ML
     Route: 058
     Dates: start: 20190109
  3. METHOTREXATE. [Concomitant]
     Active Substance: METHOTREXATE
  4. LORATIDINE [Concomitant]
     Active Substance: LORATADINE
  5. FOLIC ACID. [Concomitant]
     Active Substance: FOLIC ACID
  6. LYRICA [Concomitant]
     Active Substance: PREGABALIN

REACTIONS (4)
  - Erythema [Unknown]
  - Injection site pruritus [Unknown]
  - Swelling face [Unknown]
  - Injection site pain [Unknown]

NARRATIVE: CASE EVENT DATE: 2019
